FAERS Safety Report 10529048 (Version 2)
Quarter: 2014Q4

REPORT INFORMATION
  Report Type: Spontaneous
  Country: US (occurrence: US)
  Receive Date: 20141020
  Receipt Date: 20141128
  Transmission Date: 20150528
  Serious: No
  Sender: FDA-Public Use
  Company Number: US-PFIZER INC-2014282900

PATIENT
  Age: 71 Year
  Sex: Female
  Weight: 79 kg

DRUGS (4)
  1. ROPINIROLE HYDROCHLORIDE. [Concomitant]
     Active Substance: ROPINIROLE HYDROCHLORIDE
     Route: 048
  2. LYRICA [Suspect]
     Active Substance: PREGABALIN
     Indication: SPONDYLOLISTHESIS
     Dosage: 75 MG, 2X/DAY (AT BEDTIME)
     Route: 048
     Dates: start: 20140902
  3. ALEVE [Concomitant]
     Active Substance: NAPROXEN SODIUM
  4. LYRICA [Suspect]
     Active Substance: PREGABALIN
     Indication: SPINAL COLUMN STENOSIS

REACTIONS (4)
  - Drug ineffective [Unknown]
  - Restless legs syndrome [Unknown]
  - Balance disorder [Unknown]
  - Pain [Not Recovered/Not Resolved]
